FAERS Safety Report 5275911-8 (Version None)
Quarter: 2007Q1

REPORT INFORMATION
  Report Type: 
  Country: None (occurrence: None)
  Receive Date: 20070326
  Receipt Date: 20070316
  Transmission Date: 20070707
  Serious: Yes (Other)
  Sender: FDA-Public Use
  Company Number: GB-MERCK-0703USA03575

PATIENT
  Age: 70 Year
  Sex: Male

DRUGS (5)
  1. PRINIVIL [Suspect]
     Route: 048
     Dates: start: 20050615
  2. AMITRIPTYLINE HYDROCHLORIDE [Concomitant]
     Route: 048
     Dates: start: 20050615
  3. BENDROFLUMETHIAZIDE [Concomitant]
     Route: 048
  4. FELODIPINE [Concomitant]
     Route: 048
  5. SIMVASTATIN [Concomitant]
     Route: 065
     Dates: start: 20050615

REACTIONS (1)
  - ABNORMAL DREAMS [None]
